FAERS Safety Report 8525737-4 (Version None)
Quarter: 2012Q3

REPORT INFORMATION
  Report Type: 
  Country: None (occurrence: None)
  Receive Date: 20120720
  Receipt Date: 20120709
  Transmission Date: 20120928
  Serious: Yes (Other)
  Sender: FDA-Public Use
  Company Number: US-009507513-1206USA04212

PATIENT

DRUGS (9)
  1. ATENOLOL [Concomitant]
     Dosage: UNK MG, UNK
  2. ISOSORBIDE MONONITRATE [Concomitant]
     Dosage: UNK MG, UNK
  3. PLAVIX [Concomitant]
     Dosage: UNK MG, UNK
  4. ATIVAN [Concomitant]
     Dosage: UNK MG, UNK
  5. METFORMIN HCL [Concomitant]
     Dosage: UNK MG, UNK
  6. LOTRISONE [Concomitant]
  7. SIMVASTATIN [Concomitant]
  8. JANUVIA [Suspect]
     Indication: TYPE 2 DIABETES MELLITUS
     Dosage: 100 MG, QD
     Route: 048
     Dates: start: 20070727, end: 20100706
  9. DIOVAN HCT [Concomitant]
     Dosage: UNK MG, UNK

REACTIONS (1)
  - PANCREATIC CARCINOMA [None]
